FAERS Safety Report 13405319 (Version 3)
Quarter: 2017Q2

REPORT INFORMATION
  Report Type: Spontaneous
  Country: US (occurrence: US)
  Receive Date: 20170405
  Receipt Date: 20170619
  Transmission Date: 20170830
  Serious: Yes (Death, Hospitalization, Other)
  Sender: FDA-Public Use
  Company Number: US-GLAXOSMITHKLINE-A0832902A

PATIENT
  Age: 77 Year
  Sex: Male
  Weight: 62.7 kg

DRUGS (2)
  1. COREG CR [Suspect]
     Active Substance: CARVEDILOL PHOSPHATE
     Indication: PRODUCT USED FOR UNKNOWN INDICATION
  2. COREG [Suspect]
     Active Substance: CARVEDILOL
     Indication: PRODUCT USED FOR UNKNOWN INDICATION
     Dosage: 25 MG, BID
     Route: 065

REACTIONS (17)
  - Fall [Unknown]
  - Confusional state [Unknown]
  - Decreased appetite [Unknown]
  - Apallic syndrome [Unknown]
  - Emergency care [Unknown]
  - Swelling [Unknown]
  - Paralysis [Unknown]
  - Depression [Unknown]
  - Weight decreased [Unknown]
  - Fatigue [Unknown]
  - Balance disorder [Unknown]
  - Amnesia [Unknown]
  - Asthenia [Unknown]
  - Subdural haematoma [Unknown]
  - Adverse drug reaction [Unknown]
  - Death [Fatal]
  - Rehabilitation therapy [Unknown]

NARRATIVE: CASE EVENT DATE: 20080127
